FAERS Safety Report 8045731-X (Version None)
Quarter: 2012Q1

REPORT INFORMATION
  Report Type: 
  Country: None (occurrence: None)
  Receive Date: 20120113
  Receipt Date: 20120106
  Transmission Date: 20120608
  Serious: Yes (Other)
  Sender: FDA-Public Use
  Company Number: PHEH2012US000788

PATIENT
  Sex: Female

DRUGS (7)
  1. RITALIN [Suspect]
     Dosage: 10 MG, BID
  2. HYDROXYZINE [Concomitant]
     Indication: BLOOD PRESSURE
     Dosage: UNK UKN, UNK
  3. MINIPRESS [Concomitant]
     Indication: BLOOD PRESSURE
     Dosage: UNK UKN, UNK
  4. PROZAC [Concomitant]
     Dosage: 160 MG, UNK
  5. CLARINEX [Concomitant]
  6. RITALIN [Suspect]
     Dosage: 10 MG, QID
  7. LASIX [Concomitant]
     Indication: BLOOD PRESSURE
     Dosage: UNK UKN, UNK

REACTIONS (2)
  - HOMICIDAL IDEATION [None]
  - ANGER [None]
